FAERS Safety Report 25077897 (Version 1)
Quarter: 2025Q1

REPORT INFORMATION
  Report Type: Report from Study
  Country: US (occurrence: US)
  Receive Date: 20250314
  Receipt Date: 20250314
  Transmission Date: 20250409
  Serious: No
  Sender: ACADIA PHARMACEUTICALS
  Company Number: US-ACADIA PHARMACEUTICALS INC.-ACA-2025-PIM-002656

PATIENT
  Sex: Male

DRUGS (20)
  1. NUPLAZID [Suspect]
     Active Substance: PIMAVANSERIN TARTRATE
     Indication: Dementia
     Dosage: 34 MILLIGRAM, QD
     Route: 048
  2. NUPLAZID [Suspect]
     Active Substance: PIMAVANSERIN TARTRATE
     Indication: Psychotic disorder
  3. PLAVIX [Concomitant]
     Active Substance: CLOPIDOGREL BISULFATE
  4. HYDROXYCHLOROQUINE SULFATE [Concomitant]
     Active Substance: HYDROXYCHLOROQUINE SULFATE
  5. CRESTOR [Concomitant]
     Active Substance: ROSUVASTATIN CALCIUM
  6. VITAMIN C [Concomitant]
     Active Substance: ASCORBIC ACID
  7. TAMSULOSIN [Concomitant]
     Active Substance: TAMSULOSIN
  8. AMLODIPINE BESYLATE [Concomitant]
     Active Substance: AMLODIPINE BESYLATE
  9. ASPIRIN [Concomitant]
     Active Substance: ASPIRIN
  10. LEVOTHYROXINE SODIUM [Concomitant]
     Active Substance: LEVOTHYROXINE SODIUM
  11. VITAMIN D2 [Concomitant]
     Active Substance: ERGOCALCIFEROL
  12. IPRATROPIUM BROMIDE [Concomitant]
     Active Substance: IPRATROPIUM BROMIDE
  13. DONEPEZIL [Concomitant]
     Active Substance: DONEPEZIL
  14. IRON\VITAMINS [Concomitant]
     Active Substance: IRON\VITAMINS
  15. CARBIDOPA\LEVODOPA [Concomitant]
     Active Substance: CARBIDOPA\LEVODOPA
  16. ENTACAPONE [Concomitant]
     Active Substance: ENTACAPONE
  17. TYLENOL [Concomitant]
     Active Substance: ACETAMINOPHEN
  18. FAMOTIDINE [Concomitant]
     Active Substance: FAMOTIDINE
  19. ALTACE [Concomitant]
     Active Substance: RAMIPRIL
  20. FENOFIBRATE [Concomitant]
     Active Substance: FENOFIBRATE

REACTIONS (3)
  - Delusion [Not Recovered/Not Resolved]
  - Nightmare [Not Recovered/Not Resolved]
  - Drug effect less than expected [Not Recovered/Not Resolved]
